FAERS Safety Report 4924786-2 (Version None)
Quarter: 2006Q1

REPORT INFORMATION
  Report Type: 
  Country: None (occurrence: None)
  Receive Date: 20060222
  Receipt Date: 20060208
  Transmission Date: 20060701
  Serious: Yes (Other)
  Sender: FDA-Public Use
  Company Number: 2006BH002793

PATIENT

DRUGS (2)
  1. CARBOPLATIN GENERIC [Suspect]
     Indication: LUNG NEOPLASM MALIGNANT
  2. VINORELBINE [Suspect]
     Indication: LUNG NEOPLASM MALIGNANT
     Dosage: 25 MG/M**2;

REACTIONS (1)
  - OESOPHAGITIS [None]
